FAERS Safety Report 17641344 (Version 1)
Quarter: 2020Q2

REPORT INFORMATION
  Report Type: Spontaneous
  Country: DE (occurrence: DE)
  Receive Date: 20200407
  Receipt Date: 20200407
  Transmission Date: 20200713
  Serious: Yes (Other)
  Sender: FDA-Public Use
  Company Number: NVSC2020DE021913

PATIENT
  Sex: Male
  Weight: 65 kg

DRUGS (2)
  1. TEGRETAL RETARD [Suspect]
     Active Substance: CARBAMAZEPINE
     Indication: GENERALISED TONIC-CLONIC SEIZURE
     Dosage: 500 MG, QD
     Route: 065
  2. TEGRETAL RETARD [Suspect]
     Active Substance: CARBAMAZEPINE
     Indication: PARTIAL SEIZURES
     Dosage: 400 MG, BID
     Route: 065
     Dates: start: 1990

REACTIONS (5)
  - Glycosuria [Recovered/Resolved]
  - Vertigo [Recovering/Resolving]
  - Nervous system disorder [Recovering/Resolving]
  - Neuroborreliosis [Recovering/Resolving]
  - Somnolence [Recovering/Resolving]

NARRATIVE: CASE EVENT DATE: 201910
